FAERS Safety Report 9135687 (Version 1)
Quarter: 2013Q1

REPORT INFORMATION
  Report Type: Spontaneous
  Country: US (occurrence: US)
  Receive Date: 20130304
  Receipt Date: 20130304
  Transmission Date: 20140127
  Serious: No
  Sender: FDA-Public Use
  Company Number: US-ENDO PHARMACEUTICALS INC.-OPCR20120538

PATIENT
  Sex: Male
  Weight: 108.96 kg

DRUGS (4)
  1. OPANA ER [Suspect]
     Indication: PAIN
     Route: 048
     Dates: start: 201204, end: 201204
  2. OPANA ER [Suspect]
     Route: 048
     Dates: start: 2012, end: 2012
  3. PERCOCET 10MG/325MG [Concomitant]
     Indication: BREAKTHROUGH PAIN
     Dosage: 10 MG/325 MG
     Route: 048
  4. OPANA ER [Concomitant]

REACTIONS (3)
  - Medication residue present [Recovered/Resolved]
  - Abdominal pain upper [Recovered/Resolved]
  - Drug effect decreased [Recovered/Resolved]
